FAERS Safety Report 6148511-5 (Version None)
Quarter: 2009Q2

REPORT INFORMATION
  Report Type: 
  Country: None (occurrence: None)
  Receive Date: 20090406
  Receipt Date: 20090406
  Transmission Date: 20091009
  Serious: Yes (Other)
  Sender: FDA-Public Use
  Company Number: None

PATIENT
  Age: 44 Year
  Sex: Male
  Weight: 79.3795 kg

DRUGS (1)
  1. SEPTOCAINE [Suspect]
     Indication: DENTAL CARE
     Dosage: 2 INJECTIONS ONCE DENTAL
     Route: 004
     Dates: start: 20090212, end: 20090212

REACTIONS (4)
  - AMNESIA [None]
  - ANXIETY [None]
  - DIZZINESS [None]
  - MEMORY IMPAIRMENT [None]
